FAERS Safety Report 4621269-4 (Version None)
Quarter: 2005Q1

REPORT INFORMATION
  Report Type: 
  Country: None (occurrence: None)
  Receive Date: 20050329
  Receipt Date: 20050316
  Transmission Date: 20050727
  Serious: Yes (Hospitalization)
  Sender: FDA-Public Use
  Company Number: PL-JNJFOC-20050304638

PATIENT
  Age: 20 Year
  Sex: Female

DRUGS (5)
  1. PARACETAMOL [Suspect]
  2. PARACETAMOL [Suspect]
     Indication: SUICIDE ATTEMPT
     Dosage: UNKNOWN NUMBER OF 0.5 GRAM EACH
  3. SORBIFER DURULES [Suspect]
     Indication: SUICIDE ATTEMPT
  4. NAPROXEN [Suspect]
     Indication: SUICIDE ATTEMPT
  5. SIGNOPAM [Suspect]
     Indication: SUICIDE ATTEMPT

REACTIONS (19)
  - BLOOD IRON INCREASED [None]
  - BODY TEMPERATURE INCREASED [None]
  - COMA [None]
  - COMA HEPATIC [None]
  - DEPRESSED LEVEL OF CONSCIOUSNESS [None]
  - DRUG TOXICITY [None]
  - GASTROINTESTINAL HAEMORRHAGE [None]
  - HAEMATEMESIS [None]
  - HAEMOGLOBIN DECREASED [None]
  - HEPATIC FAILURE [None]
  - HEPATITIS B SURFACE ANTIGEN POSITIVE [None]
  - INTENTIONAL MISUSE [None]
  - LEUKOCYTOSIS [None]
  - METABOLIC ACIDOSIS [None]
  - PLATELET COUNT DECREASED [None]
  - SHOCK [None]
  - SUICIDE ATTEMPT [None]
  - VISUAL DISTURBANCE [None]
  - VOMITING [None]
